FAERS Safety Report 6126120-1 (Version None)
Quarter: 2009Q1

REPORT INFORMATION
  Report Type: 
  Country: None (occurrence: None)
  Receive Date: 20090320
  Receipt Date: 20090313
  Transmission Date: 20090719
  Serious: Yes (Hospitalization)
  Sender: FDA-Public Use
  Company Number: A0725156A

PATIENT
  Age: 53 Year
  Sex: Male
  Weight: 118.2 kg

DRUGS (4)
  1. AVANDIA [Suspect]
     Dosage: 4MG PER DAY
     Route: 065
     Dates: start: 20000613, end: 20070609
  2. METFORMIN HCL [Concomitant]
     Dates: start: 20020222, end: 20040102
  3. LANTUS [Concomitant]
     Dates: start: 20040108
  4. AMARYL [Concomitant]
     Dates: start: 20051025

REACTIONS (2)
  - HEART INJURY [None]
  - MYOCARDIAL INFARCTION [None]
